FAERS Safety Report 5288331-7 (Version None)
Quarter: 2007Q2

REPORT INFORMATION
  Report Type: 
  Country: None (occurrence: None)
  Receive Date: 20070405
  Receipt Date: 20070326
  Transmission Date: 20071010
  Serious: Yes (Death, Hospitalization)
  Sender: FDA-Public Use
  Company Number: CA-ROCHE-490092

PATIENT
  Age: 58 Year
  Sex: Female

DRUGS (1)
  1. XELODA [Suspect]
     Dosage: STOP DATE: 2006
     Route: 048
     Dates: start: 20061015

REACTIONS (3)
  - INSOMNIA [None]
  - OEDEMA PERIPHERAL [None]
  - PULMONARY OEDEMA [None]
